FAERS Safety Report 11085714 (Version 2)
Quarter: 2015Q2

REPORT INFORMATION
  Report Type: Spontaneous
  Country: US (occurrence: US)
  Receive Date: 20150503
  Receipt Date: 20150525
  Transmission Date: 20150821
  Serious: No
  Sender: FDA-Public Use
  Company Number: US-JNJFOC-20120403428

PATIENT
  Age: 17 Year
  Sex: Female
  Weight: 77.11 kg

DRUGS (2)
  1. ELEMENTAL IRON [Concomitant]
     Indication: ANAEMIA
     Route: 048
  2. TRINESSA [Suspect]
     Active Substance: ETHINYL ESTRADIOL\NORGESTIMATE
     Indication: ORAL CONTRACEPTION
     Route: 048
     Dates: start: 2010

REACTIONS (2)
  - Drug dose omission [Unknown]
  - Metrorrhagia [Not Recovered/Not Resolved]

NARRATIVE: CASE EVENT DATE: 20120405
